FAERS Safety Report 8634880 (Version 2)
Quarter: 2013Q2

REPORT INFORMATION
  Report Type: Spontaneous
  Country: JP (occurrence: JP)
  Receive Date: 20120626
  Receipt Date: 20130403
  Transmission Date: 20140414
  Serious: Yes (Hospitalization, Other)
  Sender: FDA-Public Use
  Company Number: JP-PFIZER INC-2012150807

PATIENT
  Sex: Female

DRUGS (11)
  1. ATENOLOL [Suspect]
     Indication: HYPERTENSION
     Dosage: 25 MG,DAILY
     Route: 064
  2. AMLODIPINE BESILATE [Suspect]
     Indication: HYPERTENSION
     Dosage: 5 MG, DAILY
     Route: 064
  3. CANDESARTAN CILEXETIL [Suspect]
     Indication: HYPERTENSION
     Dosage: 4 MG, DAILY
     Route: 064
  4. NIFEDIPINE [Suspect]
     Indication: HYPERTENSION
     Dosage: UNK
     Route: 064
  5. HYDRALAZINE HYDROCHLORIDE [Suspect]
     Dosage: 30 MG, DAILY
     Route: 064
  6. HYDRALAZINE HYDROCHLORIDE [Suspect]
     Dosage: 70 MG, DAILY
     Route: 064
  7. PREDNISOLONE [Suspect]
     Indication: SYSTEMIC LUPUS ERYTHEMATOSUS
     Dosage: 30 MG, DAILY
     Route: 064
  8. PREDNISOLONE [Suspect]
     Indication: LUPUS NEPHRITIS
  9. HEPARIN [Concomitant]
     Dosage: UNK
     Route: 064
  10. BETAMETHASONE [Concomitant]
     Dosage: UNK
     Route: 064
  11. ALBUMIN [Concomitant]
     Dosage: UNK
     Route: 064

REACTIONS (5)
  - Maternal exposure timing unspecified [Unknown]
  - Foetal growth restriction [Unknown]
  - Low birth weight baby [Recovered/Resolved]
  - Neonatal respiratory distress syndrome [Recovered/Resolved]
  - Premature baby [Recovered/Resolved]
